FAERS Safety Report 6262180-5 (Version None)
Quarter: 2009Q3

REPORT INFORMATION
  Report Type: 
  Country: None (occurrence: None)
  Receive Date: 20090709
  Receipt Date: 20090701
  Transmission Date: 20100115
  Serious: Yes (Hospitalization)
  Sender: FDA-Public Use
  Company Number: JP-MERCK-0907USA00727

PATIENT
  Age: 45 Year
  Sex: Female

DRUGS (3)
  1. DECADRON [Suspect]
     Indication: METASTASES TO LYMPH NODES
     Route: 048
  2. PACLITAXEL [Concomitant]
     Indication: METASTASES TO LYMPH NODES
     Route: 042
  3. HERCEPTIN [Concomitant]
     Indication: METASTASES TO LYMPH NODES
     Route: 042

REACTIONS (1)
  - HEPATITIS B [None]
